FAERS Safety Report 17050614 (Version 4)
Quarter: 2019Q4

REPORT INFORMATION
  Report Type: Spontaneous
  Country: SE (occurrence: SE)
  Receive Date: 20191119
  Receipt Date: 20191127
  Transmission Date: 20200122
  Serious: Yes (Other)
  Sender: FDA-Public Use
  Company Number: SE-009507513-1911SWE006276

PATIENT
  Age: 57 Year
  Sex: Female

DRUGS (1)
  1. KEYTRUDA [Suspect]
     Active Substance: PEMBROLIZUMAB
     Indication: LUNG ADENOCARCINOMA
     Dosage: UNK
     Dates: start: 201810

REACTIONS (3)
  - Colitis ulcerative [Unknown]
  - Lichenoid keratosis [Unknown]
  - Erythema multiforme [Unknown]

NARRATIVE: CASE EVENT DATE: 201909
